FAERS Safety Report 4882723-3 (Version None)
Quarter: 2005Q4

REPORT INFORMATION
  Report Type: 
  Country: None (occurrence: None)
  Receive Date: 20051201
  Receipt Date: 20050916
  Transmission Date: 20060501
  Serious: No
  Sender: FDA-Public Use
  Company Number: 2005PV002204

PATIENT
  Age: 74 Year
  Sex: Male

DRUGS (6)
  1. BYETTA [Suspect]
     Indication: DIABETES MELLITUS NON-INSULIN-DEPENDENT
     Dosage: 5 MCG; BID; SC ; SEE IMAGE
     Route: 058
     Dates: start: 20050601, end: 20050701
  2. BYETTA [Suspect]
     Indication: DIABETES MELLITUS NON-INSULIN-DEPENDENT
     Dosage: 5 MCG; BID; SC ; SEE IMAGE
     Route: 058
     Dates: start: 20050701, end: 20050801
  3. BYETTA [Suspect]
     Indication: DIABETES MELLITUS NON-INSULIN-DEPENDENT
     Dosage: 5 MCG; BID; SC ; SEE IMAGE
     Route: 058
     Dates: start: 20050801, end: 20050913
  4. NOVOLOG [Concomitant]
  5. LANTUS [Concomitant]
  6. PREDNISONE [Concomitant]

REACTIONS (5)
  - BLOOD GLUCOSE [None]
  - BLOOD GLUCOSE DECREASED [None]
  - NAUSEA [None]
  - PAIN [None]
  - SYNCOPE [None]
